FAERS Safety Report 26075477 (Version 1)
Quarter: 2025Q4

REPORT INFORMATION
  Report Type: Other
  Country: US (occurrence: US)
  Receive Date: 20251121
  Receipt Date: 20251121
  Transmission Date: 20260118
  Serious: No
  Sender: VERASTEM
  Company Number: US-VERASTEM-250903US-AFCPK-00530

PATIENT

DRUGS (2)
  1. AVMAPKI FAKZYNJA CO-PACK [Suspect]
     Active Substance: AVUTOMETINIB POTASSIUM\DEFACTINIB HYDROCHLORIDE
     Indication: Ovarian cancer
     Dosage: TAKE AS DIRECTED PER DOSING CARD INSIDE MEDICATION BOX
     Route: 048
     Dates: start: 20250823
  2. AVMAPKI FAKZYNJA CO-PACK [Suspect]
     Active Substance: AVUTOMETINIB POTASSIUM\DEFACTINIB HYDROCHLORIDE
     Dosage: 3 CAPSULES OF AVMAPKI SAYS 1 AND 4 AND 1 TABLET OF FAKZNJA ONCE A DAY ON WEEKS 1,2, AND 3
     Route: 048
     Dates: start: 20250901

REACTIONS (8)
  - Depression [Recovered/Resolved]
  - Somnolence [Recovering/Resolving]
  - Diarrhoea [Recovering/Resolving]
  - Asthenia [Unknown]
  - Pruritus [Unknown]
  - Fatigue [Unknown]
  - Nausea [Recovering/Resolving]
  - Vomiting [Recovering/Resolving]

NARRATIVE: CASE EVENT DATE: 20250801
